FAERS Safety Report 4842630-9 (Version None)
Quarter: 2005Q4

REPORT INFORMATION
  Report Type: 
  Country: None (occurrence: None)
  Receive Date: 20051201
  Receipt Date: 20051128
  Transmission Date: 20060501
  Serious: Yes (Hospitalization)
  Sender: FDA-Public Use
  Company Number: NL-GLAXOSMITHKLINE-B0402142A

PATIENT
  Age: 50 Year
  Sex: Male

DRUGS (5)
  1. AUGMENTIN [Suspect]
     Indication: EAR INFECTION
     Dates: start: 20050919, end: 20050926
  2. ACETYLSALICYLIC ACID [Concomitant]
     Dosage: 80MG PER DAY
     Dates: start: 19980101
  3. LIPITOR [Concomitant]
     Dosage: 40MG PER DAY
     Dates: start: 19980101
  4. NEWACE [Concomitant]
     Dates: start: 19980101
  5. CARVEDILOL [Concomitant]
     Dosage: 25MG PER DAY
     Dates: start: 19980101

REACTIONS (5)
  - CHOLESTASIS [None]
  - CHROMATURIA [None]
  - FAECES DISCOLOURED [None]
  - JAUNDICE [None]
  - PRURITUS [None]
